FAERS Safety Report 8112001-0 (Version None)
Quarter: 2012Q1

REPORT INFORMATION
  Report Type: 
  Country: None (occurrence: None)
  Receive Date: 20120203
  Receipt Date: 20120125
  Transmission Date: 20120608
  Serious: Yes (Life-Threatening, Hospitalization, Other)
  Sender: FDA-Public Use
  Company Number: DE-PFIZER INC-2012021202

PATIENT
  Age: 66 Year
  Sex: Male
  Weight: 125 kg

DRUGS (7)
  1. IBUPROFEN [Suspect]
     Dosage: 800 MG, 1-2X/DAY
     Route: 048
     Dates: start: 20111103, end: 20111117
  2. VOLTAREN [Suspect]
     Indication: ARTHRALGIA
     Dosage: 1 DF, 2X/DAY
     Route: 048
     Dates: start: 20111025, end: 20111116
  3. IBUPROFEN [Suspect]
     Indication: ARTHRALGIA
     Dosage: 600 MG, 1-2X/DAY
     Route: 048
     Dates: start: 20111025, end: 20111102
  4. PANTOPRAZOLE [Suspect]
     Dosage: UNK
     Dates: start: 20111206, end: 20111208
  5. VALORON N RETARD [Suspect]
     Dosage: 1 DF, 2X/DAY
     Route: 048
     Dates: start: 20111118, end: 20111208
  6. PANTOPRAZOLE [Suspect]
     Dosage: 20 MG, 1X/DAY
     Route: 048
     Dates: start: 20111119, end: 20111205
  7. VALORON N RETARD [Suspect]
     Dosage: 1 DF, 1X/DAY
     Route: 048
     Dates: start: 20111118, end: 20111118

REACTIONS (1)
  - RENAL FAILURE ACUTE [None]
